FAERS Safety Report 26091064 (Version 1)
Quarter: 2025Q4

REPORT INFORMATION
  Report Type: Report from Study
  Country: EU (occurrence: EU)
  Receive Date: 20251126
  Receipt Date: 20251126
  Transmission Date: 20260117
  Serious: Yes (Death)
  Sender: ROCHE
  Company Number: EU-ROCHE-10000440160

PATIENT

DRUGS (2)
  1. ATEZOLIZUMAB [Suspect]
     Active Substance: ATEZOLIZUMAB
     Indication: Hepatocellular carcinoma
     Route: 042
  2. BEVACIZUMAB [Suspect]
     Active Substance: BEVACIZUMAB
     Indication: Hepatocellular carcinoma
     Route: 042

REACTIONS (7)
  - Skin disorder [Fatal]
  - Myocarditis [Fatal]
  - Bleeding varicose vein [Fatal]
  - Haemorrhage [Fatal]
  - Cardiac disorder [Fatal]
  - Duodenal ulcer perforation [Fatal]
  - Hepatic failure [Fatal]
